FAERS Safety Report 4612690-9 (Version None)
Quarter: 2005Q1

REPORT INFORMATION
  Report Type: 
  Country: None (occurrence: None)
  Receive Date: 20050318
  Receipt Date: 20050309
  Transmission Date: 20050727
  Serious: Yes (Death, Hospitalization, Other)
  Sender: FDA-Public Use
  Company Number: US-BRISTOL-MYERS SQUIBB COMPANY-12891776

PATIENT
  Age: 72 Year
  Sex: Female

DRUGS (4)
  1. PACLITAXEL [Suspect]
     Indication: OVARIAN CANCER METASTATIC
     Dosage: PREV DOSING: 4 CY. 11MAR03 - 18JUN03 THEN: 4 CY. 18FEB04 - 05MAY04
     Route: 042
     Dates: start: 20040610, end: 20041122
  2. CARBOPLATIN [Suspect]
     Indication: OVARIAN CANCER METASTATIC
     Dates: start: 20040218, end: 20040505
  3. DOXIL [Suspect]
     Indication: OVARIAN CANCER METASTATIC
     Route: 042
     Dates: start: 20021101, end: 20030226
  4. GEMZAR [Suspect]
     Indication: OVARIAN CANCER METASTATIC
     Route: 042
     Dates: start: 20021101, end: 20030226

REACTIONS (2)
  - ACUTE MYELOID LEUKAEMIA [None]
  - LUNG INFILTRATION [None]
